FAERS Safety Report 8483536-6 (Version None)
Quarter: 2012Q3

REPORT INFORMATION
  Report Type: 
  Country: None (occurrence: None)
  Receive Date: 20120702
  Receipt Date: 20120626
  Transmission Date: 20120928
  Serious: Yes (Hospitalization)
  Sender: FDA-Public Use
  Company Number: US-MERCK-1206USA04911

PATIENT
  Age: 45 Year
  Sex: Female

DRUGS (6)
  1. ALISKIREN [Concomitant]
     Route: 065
  2. PRINIVIL [Suspect]
     Indication: HYPERTENSION
     Route: 048
  3. AMLODIPINE [Concomitant]
     Route: 065
  4. MINOXIDIL [Concomitant]
     Route: 065
  5. METOPROLOL [Concomitant]
     Route: 065
  6. HYDRALAZINE [Concomitant]
     Route: 042

REACTIONS (1)
  - DRUG INEFFECTIVE [None]
